FAERS Safety Report 13157350 (Version 1)
Quarter: 2017Q1

REPORT INFORMATION
  Report Type: Spontaneous
  Country: US (occurrence: US)
  Receive Date: 20170127
  Receipt Date: 20170127
  Transmission Date: 20170428
  Serious: No
  Sender: FDA-Public Use
  Company Number: US-JNJFOC-20170115193

PATIENT
  Age: 64 Year
  Sex: Female

DRUGS (3)
  1. PEPCID [Suspect]
     Active Substance: FAMOTIDINE
     Indication: SKIN REACTION
     Route: 048
  2. ALLEGRA [Concomitant]
     Active Substance: FEXOFENADINE HYDROCHLORIDE
     Indication: SKIN REACTION
     Route: 065
  3. PEPCID [Suspect]
     Active Substance: FAMOTIDINE
     Route: 048

REACTIONS (2)
  - Product use issue [Unknown]
  - Potentiating drug interaction [Unknown]
